FAERS Safety Report 6265492-4 (Version None)
Quarter: 2009Q3

REPORT INFORMATION
  Report Type: 
  Country: None (occurrence: None)
  Receive Date: 20090713
  Receipt Date: 20090706
  Transmission Date: 20100115
  Serious: Yes (Other)
  Sender: FDA-Public Use
  Company Number: PHHY2009JP28037

PATIENT
  Age: 59 Year
  Sex: Male

DRUGS (1)
  1. DICLOFENAC SODIUM [Suspect]

REACTIONS (3)
  - HEPATITIS A [None]
  - HEPATITIS ACUTE [None]
  - RENAL IMPAIRMENT [None]
